FAERS Safety Report 26198704 (Version 1)
Quarter: 2025Q4

REPORT INFORMATION
  Report Type: Spontaneous
  Country: JP (occurrence: JP)
  Receive Date: 20251225
  Receipt Date: 20251225
  Transmission Date: 20260117
  Serious: Yes (Other)
  Sender: TAKEDA
  Company Number: JP-TAKEDA-2025TJP013060

PATIENT
  Age: 8 Decade
  Sex: Male

DRUGS (2)
  1. ALUNBRIG [Suspect]
     Active Substance: BRIGATINIB
     Indication: Non-small cell lung cancer
     Dosage: 120 MILLIGRAM, QD
     Dates: start: 20221215
  2. ALUNBRIG [Suspect]
     Active Substance: BRIGATINIB
     Dosage: UNK

REACTIONS (1)
  - Brain oedema [Recovered/Resolved]

NARRATIVE: CASE EVENT DATE: 20251103
